FAERS Safety Report 8544038-1 (Version None)
Quarter: 2012Q3

REPORT INFORMATION
  Report Type: 
  Country: None (occurrence: None)
  Receive Date: 20120727
  Receipt Date: 20120723
  Transmission Date: 20120928
  Serious: No
  Sender: FDA-Public Use
  Company Number: US-PFIZER INC-2012177929

PATIENT
  Sex: Male
  Weight: 47 kg

DRUGS (7)
  1. ALBUTEROL [Concomitant]
     Dosage: UNK
  2. ZYVOX [Suspect]
     Indication: ENTEROCOCCAL INFECTION
     Dosage: 600 MG, 2X/DAY
     Route: 042
     Dates: start: 20120701, end: 20120719
  3. TYLENOL [Concomitant]
     Dosage: UNK
  4. BACLOFEN [Concomitant]
     Dosage: 60 MG, 3X/DAY
  5. SINEMET [Interacting]
     Indication: QUADRIPLEGIA
     Dosage: UNK
     Dates: end: 20120701
  6. VANCOMYCIN [Concomitant]
     Dosage: 1 G, 2X/DAY
     Route: 042
  7. SINEMET [Interacting]
     Dosage: UNK
     Dates: start: 20120701

REACTIONS (4)
  - AGITATION [None]
  - FAECES DISCOLOURED [None]
  - INSOMNIA [None]
  - DRUG INTERACTION [None]
